FAERS Safety Report 20070965 (Version 1)
Quarter: 2021Q4

REPORT INFORMATION
  Report Type: Spontaneous
  Country: US (occurrence: US)
  Receive Date: 20211115
  Receipt Date: 20211115
  Transmission Date: 20220304
  Serious: Yes (Other)
  Sender: FDA-Public Use
  Company Number: US-NOVARTISPH-NVSC2021US259032

PATIENT
  Age: 58 Year
  Sex: Male

DRUGS (4)
  1. RANITIDINE [Suspect]
     Active Substance: RANITIDINE
     Indication: Gastrooesophageal reflux disease
     Dosage: 300 MG, UNKNOWN
     Route: 065
     Dates: end: 201909
  2. RANITIDINE [Suspect]
     Active Substance: RANITIDINE
     Indication: Crohn^s disease
  3. RANITIDINE [Suspect]
     Active Substance: RANITIDINE
     Indication: Gastrooesophageal reflux disease
     Dosage: 300 MG, UNKNOWN
     Route: 065
     Dates: end: 201909
  4. RANITIDINE [Suspect]
     Active Substance: RANITIDINE
     Indication: Crohn^s disease

REACTIONS (2)
  - Renal cancer stage I [Unknown]
  - Product use in unapproved indication [Unknown]

NARRATIVE: CASE EVENT DATE: 20100217
